FAERS Safety Report 16678665 (Version 1)
Quarter: 2019Q3

REPORT INFORMATION
  Report Type: Spontaneous
  Country: GB (occurrence: GB)
  Receive Date: 20190807
  Receipt Date: 20190807
  Transmission Date: 20191004
  Serious: Yes (Life-Threatening)
  Sender: FDA-Public Use
  Company Number: GB-PFIZER INC-2019338465

PATIENT
  Age: 77 Year
  Sex: Female
  Weight: 57 kg

DRUGS (8)
  1. ATORVASTATIN [Concomitant]
     Active Substance: ATORVASTATIN
     Dosage: 1 DF, QD (EACH NIGHT)
     Dates: start: 20141127
  2. AMLODIPINE [Concomitant]
     Active Substance: AMLODIPINE BESYLATE
     Dosage: 1 DF, QD (IN THE MORNING)
     Dates: start: 20170915, end: 20190627
  3. FERROUS FUMARATE [Concomitant]
     Active Substance: FERROUS FUMARATE
     Dosage: 2 DF, QD
     Dates: start: 20190116
  4. DOXAZOSIN [Concomitant]
     Active Substance: DOXAZOSIN MESYLATE
     Dosage: 1 DF, QD (IN THE MORNING)
     Route: 065
     Dates: start: 20090122, end: 20190627
  5. OMEPRAZOLE. [Concomitant]
     Active Substance: OMEPRAZOLE
     Dosage: 1 DF, QD
     Route: 065
     Dates: start: 20190116, end: 20190627
  6. RANITIDINE. [Concomitant]
     Active Substance: RANITIDINE
     Dosage: 2 DF, QD
     Dates: start: 20190627
  7. RAMIPRIL. [Suspect]
     Active Substance: RAMIPRIL
     Dosage: 10 MG, QD (IN THE MORNING)
     Route: 065
     Dates: start: 20190606, end: 20190627
  8. CO-DYDRAMOL [Concomitant]
     Active Substance: ACETAMINOPHEN\DIHYDROCODEINE
     Dosage: 8 DF, QD
     Dates: start: 20071207

REACTIONS (1)
  - Acute kidney injury [Recovered/Resolved]

NARRATIVE: CASE EVENT DATE: 20190711
